FAERS Safety Report 20980901 (Version 1)
Quarter: 2022Q2

REPORT INFORMATION
  Report Type: Report from Study
  Country: BR (occurrence: BR)
  Receive Date: 20220620
  Receipt Date: 20220620
  Transmission Date: 20220720
  Serious: Yes (Other)
  Sender: FDA-Public Use
  Company Number: BR-Accord-266747

PATIENT

DRUGS (3)
  1. ETOPOSIDE [Suspect]
     Active Substance: ETOPOSIDE
     Indication: Soft tissue sarcoma
     Dosage: 100 MG/M2 FOR 4 TO 5 DAYS
  2. IFOSFAMIDE [Suspect]
     Active Substance: IFOSFAMIDE
     Indication: Soft tissue sarcoma
     Dosage: 1,800 MG/M2 FOR 3 TO 5 DAYS
  3. MESNA [Concomitant]
     Active Substance: MESNA
     Dosage: 1,800 MG/M2 FOR 3 TO 5 DAYS

REACTIONS (1)
  - Acute kidney injury [Recovered/Resolved]
